FAERS Safety Report 22642388 (Version 6)
Quarter: 2024Q1

REPORT INFORMATION
  Report Type: Report from Study
  Country: CO (occurrence: CO)
  Receive Date: 20230626
  Receipt Date: 20240222
  Transmission Date: 20240409
  Serious: Yes (Other)
  Sender: FDA-Public Use
  Company Number: CO-002147023-NVSC2022CO232490

PATIENT

DRUGS (8)
  1. RUXOLITINIB [Suspect]
     Active Substance: RUXOLITINIB
     Indication: Myelofibrosis
     Dosage: 20 MG, BID (20 MG IN MORNING AND 20 MG IN EVENING)
     Route: 048
  2. RUXOLITINIB [Suspect]
     Active Substance: RUXOLITINIB
     Dosage: 25 MG, Q12H (EVERY 12 HOURS) (STARTED THE YEAR 2022,(DOES NOT REPORT EXACT DATE)
     Route: 048
  3. RUXOLITINIB [Suspect]
     Active Substance: RUXOLITINIB
     Dosage: 25 MG, QD (IN MORNING)
     Route: 065
  4. RUXOLITINIB [Suspect]
     Active Substance: RUXOLITINIB
     Dosage: 50 MG, Q12H
     Route: 048
  5. RUXOLITINIB [Suspect]
     Active Substance: RUXOLITINIB
     Dosage: 25 MG, (DAILY) (1 TABLET OF 20 MG AND 1 TABLET OF 25 MG EVERY 24 HOURS)
     Route: 048
  6. RUXOLITINIB [Suspect]
     Active Substance: RUXOLITINIB
     Dosage: 25 MG, BID
     Route: 048
     Dates: start: 20201205
  7. RUXOLITINIB [Suspect]
     Active Substance: RUXOLITINIB
     Dosage: 10 MG (EVERY 12 HOURS)
     Route: 048
  8. LEVOTHYROXINE [Concomitant]
     Active Substance: LEVOTHYROXINE\LEVOTHYROXINE SODIUM
     Indication: Hypothyroidism
     Dosage: 100 MG, 24 HOURS (8 YEARS AGO (DOES NOT REPORT EXACT DATE)
     Route: 048

REACTIONS (11)
  - Abdominal pain [Unknown]
  - Haemoglobin decreased [Unknown]
  - Platelet count decreased [Unknown]
  - Dry skin [Unknown]
  - Inappropriate schedule of product administration [Unknown]
  - Haemoglobin abnormal [Unknown]
  - White blood cell count increased [Recovering/Resolving]
  - Dizziness [Unknown]
  - Second primary malignancy [Unknown]
  - Skin cancer [Unknown]
  - Splenomegaly [Not Recovered/Not Resolved]
